FAERS Safety Report 10763466 (Version 1)
Quarter: 2015Q1

REPORT INFORMATION
  Report Type: Spontaneous
  Country: US (occurrence: None)
  Receive Date: 20150129
  Receipt Date: 20150129
  Transmission Date: 20150721
  Serious: Yes (Other)
  Sender: FDA-Public Use
  Company Number: 2014016061

PATIENT
  Age: 33 Year
  Sex: Male

DRUGS (3)
  1. KEPPRA [Suspect]
     Active Substance: LEVETIRACETAM
     Indication: CONVULSION PROPHYLAXIS
     Route: 048
     Dates: start: 201101, end: 201409
  2. DEPAKOTE [Concomitant]
     Active Substance: DIVALPROEX SODIUM
  3. VIMPAT [Suspect]
     Active Substance: LACOSAMIDE
     Indication: CONVULSION PROPHYLAXIS
     Dosage: TITRATION DOSE
     Dates: start: 201408, end: 2014

REACTIONS (10)
  - Unevaluable event [None]
  - Hostility [None]
  - Dizziness [None]
  - Depression [None]
  - Anger [None]
  - Irritability [None]
  - Suicidal ideation [None]
  - Anxiety [None]
  - Balance disorder [None]
  - Headache [None]

NARRATIVE: CASE EVENT DATE: 201312
